FAERS Safety Report 5795398-6 (Version None)
Quarter: 2008Q2

REPORT INFORMATION
  Report Type: 
  Country: None (occurrence: None)
  Receive Date: 20080630
  Receipt Date: 20080618
  Transmission Date: 20081010
  Serious: Yes (Other)
  Sender: FDA-Public Use
  Company Number: US-PFIZER INC-2008028518

PATIENT
  Sex: Female
  Weight: 117 kg

DRUGS (7)
  1. LYRICA [Suspect]
     Indication: PAIN
     Route: 048
     Dates: start: 20070901, end: 20071226
  2. ALEVE [Concomitant]
  3. PERCOCET [Concomitant]
  4. ULTRAM [Concomitant]
  5. NSAID'S [Concomitant]
  6. ALL OTHER THERAPEUTIC PRODUCTS [Concomitant]
  7. OXYCODONE HCL [Concomitant]

REACTIONS (2)
  - AZOTAEMIA [None]
  - RENAL FAILURE ACUTE [None]
